FAERS Safety Report 18417344 (Version 1)
Quarter: 2020Q4

REPORT INFORMATION
  Report Type: Spontaneous
  Country: US (occurrence: US)
  Receive Date: 20201022
  Receipt Date: 20201022
  Transmission Date: 20210114
  Serious: No
  Sender: FDA-Public Use
  Company Number: 2020SGN02112

PATIENT
  Sex: Female

DRUGS (2)
  1. TUKYSA [Suspect]
     Active Substance: TUCATINIB
     Indication: BREAST CANCER STAGE IV
  2. TUKYSA [Suspect]
     Active Substance: TUCATINIB
     Indication: BREAST CANCER

REACTIONS (7)
  - Headache [Unknown]
  - Fatigue [Unknown]
  - Abnormal dreams [Unknown]
  - Palmar-plantar erythrodysaesthesia syndrome [Unknown]
  - Hypersomnia [Unknown]
  - Diarrhoea [Unknown]
  - Nausea [Unknown]
